FAERS Safety Report 6107703-1 (Version None)
Quarter: 2009Q1

REPORT INFORMATION
  Report Type: 
  Country: None (occurrence: None)
  Receive Date: 20090309
  Receipt Date: 20090302
  Transmission Date: 20090719
  Serious: Yes (Hospitalization)
  Sender: FDA-Public Use
  Company Number: A0713325A

PATIENT
  Age: 61 Year
  Sex: Male
  Weight: 81.4 kg

DRUGS (5)
  1. AVANDIA [Suspect]
     Dosage: 8MG TWICE PER DAY
     Route: 048
     Dates: start: 20020829, end: 20071211
  2. GLUCOPHAGE [Concomitant]
     Dosage: 1000MG PER DAY
     Route: 048
  3. ACTOS [Concomitant]
     Dosage: 4MG PER DAY
     Route: 048
  4. EFFEXOR XR [Concomitant]
     Dosage: 150MG PER DAY
     Route: 048
  5. ALTACE [Concomitant]
     Dosage: 5MG PER DAY
     Route: 048

REACTIONS (10)
  - ANXIETY [None]
  - CHEST PAIN [None]
  - CORONARY ARTERY DISEASE [None]
  - DEPRESSION [None]
  - DYSPNOEA [None]
  - EMOTIONAL DISTRESS [None]
  - INJURY [None]
  - INSOMNIA [None]
  - MYOCARDIAL INFARCTION [None]
  - STRESS [None]
